FAERS Safety Report 22627583 (Version 3)
Quarter: 2024Q3

REPORT INFORMATION
  Report Type: Report from Study
  Country: IT (occurrence: IT)
  Receive Date: 20230622
  Receipt Date: 20240910
  Transmission Date: 20241016
  Serious: Yes (Death, Hospitalization, Other)
  Sender: ABBVIE
  Company Number: IT-ABBVIE-5299271

PATIENT
  Age: 70 Year
  Sex: Female
  Weight: 52 kg

DRUGS (6)
  1. VENETOCLAX [Suspect]
     Active Substance: VENETOCLAX
     Indication: Acute myeloid leukaemia
     Dosage: LAST DOSE ADMINISTERED: 50 MG/DAY?1 CPR/DIE
     Route: 048
     Dates: start: 20221129, end: 20230224
  2. AMIKACIN [Concomitant]
     Active Substance: AMIKACIN
     Indication: Product used for unknown indication
     Dosage: 500 MILLIGRAM
     Route: 042
     Dates: start: 20230418, end: 20230421
  3. Fuconazole [Concomitant]
     Indication: Antifungal treatment
     Route: 042
     Dates: start: 20230418, end: 20230421
  4. ACYCLOVIR [Concomitant]
     Active Substance: ACYCLOVIR
     Indication: Antifungal treatment
     Route: 042
     Dates: start: 20230416, end: 20230421
  5. PIPERACILLIN SODIUM\TAZOBACTAM SODIUM [Concomitant]
     Active Substance: PIPERACILLIN SODIUM\TAZOBACTAM SODIUM
     Indication: Antibiotic therapy
     Route: 042
     Dates: start: 20230418, end: 20230421
  6. DECITABINE [Suspect]
     Active Substance: DECITABINE
     Indication: Product used for unknown indication
     Dosage: FREQUENCY TEXT: DAY 1,2,3,4,5?20 MG/M2
     Route: 042
     Dates: start: 20221129, end: 20230219

REACTIONS (5)
  - Escherichia sepsis [Fatal]
  - Bone marrow transplant [Unknown]
  - Pulmonary oedema [Unknown]
  - Neutropenia [Unknown]
  - Hypertension [Unknown]

NARRATIVE: CASE EVENT DATE: 20230417
